FAERS Safety Report 14220712 (Version 2)
Quarter: 2018Q3

REPORT INFORMATION
  Report Type: Spontaneous
  Country: US (occurrence: US)
  Receive Date: 20171124
  Receipt Date: 20180713
  Transmission Date: 20181010
  Serious: Yes (Other)
  Sender: FDA-Public Use
  Company Number: US-ASTRAZENECA-2017SF17508

PATIENT
  Age: 23720 Day
  Sex: Male
  Weight: 131.5 kg

DRUGS (13)
  1. TUMS [Concomitant]
     Active Substance: CALCIUM CARBONATE
     Dosage: 20/40MG A DAY
  2. PRILOSEC [Suspect]
     Active Substance: OMEPRAZOLE MAGNESIUM
     Route: 048
     Dates: start: 2016
  3. NEXIUM [Suspect]
     Active Substance: ESOMEPRAZOLE MAGNESIUM
     Indication: PEPTIC ULCER
     Route: 048
     Dates: start: 201308, end: 201603
  4. DIGOXIN. [Concomitant]
     Active Substance: DIGOXIN
  5. NEXIUM [Suspect]
     Active Substance: ESOMEPRAZOLE MAGNESIUM
     Indication: PEPTIC ULCER
     Route: 048
     Dates: start: 20131017
  6. NYSTATIN. [Concomitant]
     Active Substance: NYSTATIN
  7. CRESTOR [Concomitant]
     Active Substance: ROSUVASTATIN CALCIUM
  8. NEXIUM [Suspect]
     Active Substance: ESOMEPRAZOLE MAGNESIUM
     Indication: PEPTIC ULCER
     Route: 048
     Dates: start: 2011, end: 2016
  9. COREG [Concomitant]
     Active Substance: CARVEDILOL
  10. DIFLUCAN [Concomitant]
     Active Substance: FLUCONAZOLE
  11. PROVENTIL [Concomitant]
     Active Substance: ALBUTEROL
  12. ROSUVASTATIN. [Concomitant]
     Active Substance: ROSUVASTATIN
  13. PREGABALIN. [Concomitant]
     Active Substance: PREGABALIN

REACTIONS (2)
  - Acute kidney injury [Unknown]
  - Chronic kidney disease [Unknown]

NARRATIVE: CASE EVENT DATE: 20151207
